FAERS Safety Report 7547619-7 (Version None)
Quarter: 2011Q2

REPORT INFORMATION
  Report Type: 
  Country: None (occurrence: None)
  Receive Date: 20110614
  Receipt Date: 20110601
  Transmission Date: 20111010
  Serious: Yes (Hospitalization)
  Sender: FDA-Public Use
  Company Number: US-CELGENEUS-ABX40-07-0627

PATIENT
  Sex: Female

DRUGS (10)
  1. ABRAXANE [Suspect]
     Indication: BREAST CANCER
     Dosage: 260 MILLIGRAM/SQ. METER
     Route: 051
     Dates: start: 20061108, end: 20070214
  2. APREPITANT [Concomitant]
     Dates: start: 20061108
  3. DOXORUBICIN HCL [Suspect]
     Indication: BREAST CANCER
     Dosage: 60 MILLIGRAM/SQ. METER
     Route: 051
     Dates: start: 20061108, end: 20070620
  4. LORAZEPAM [Concomitant]
     Dates: start: 20061108
  5. AVASTIN [Suspect]
     Indication: BREAST CANCER
     Dosage: 10 MILLIGRAM/SQ. METER
     Route: 051
     Dates: start: 20061108, end: 20070620
  6. CYCLOPHOSPHAMIDE [Suspect]
     Indication: BREAST CANCER
     Dosage: 600 MILLIGRAM/SQ. METER
     Route: 051
     Dates: start: 20061108, end: 20070620
  7. NEULASTAA? [Suspect]
     Dosage: 6 MILLIGRAM
     Route: 058
     Dates: start: 20061109
  8. BISOPROLOL FUMARATE AND HYDROCHLOROTHIAZIDE [Concomitant]
     Dates: start: 20070418
  9. DOCUSATE SODIUM [Concomitant]
     Dates: start: 20061108
  10. DEXAMETHASONE [Concomitant]
     Dates: start: 20061108

REACTIONS (5)
  - PAIN IN EXTREMITY [None]
  - GASTROINTESTINAL DISORDER [None]
  - CHEST PAIN [None]
  - HYPOTHYROIDISM [None]
  - ABDOMINAL PAIN UPPER [None]
